FAERS Safety Report 6929917-0 (Version None)
Quarter: 2010Q3

REPORT INFORMATION
  Report Type: 
  Country: None (occurrence: None)
  Receive Date: 20100813
  Receipt Date: 20100803
  Transmission Date: 20110219
  Serious: Yes (Hospitalization)
  Sender: FDA-Public Use
  Company Number: DSJ-2010-13277

PATIENT
  Age: 42 Year
  Sex: Female

DRUGS (10)
  1. BENICAR [Suspect]
     Indication: HYPERTENSION
     Dosage: 40 MG (40 MG, 1 IN 1 D), PER ORAL; 80 MG (80 MG, 1 IN 1 D), PER ORAL; 40 (40 MG, 1 IN 1 D), PER ORAL
     Route: 048
     Dates: start: 20090305, end: 20100718
  2. BENICAR [Suspect]
     Indication: HYPERTENSION
     Dosage: 40 MG (40 MG, 1 IN 1 D), PER ORAL; 80 MG (80 MG, 1 IN 1 D), PER ORAL; 40 (40 MG, 1 IN 1 D), PER ORAL
     Route: 048
     Dates: start: 20100719, end: 20100719
  3. BENICAR [Suspect]
     Indication: HYPERTENSION
     Dosage: 40 MG (40 MG, 1 IN 1 D), PER ORAL; 80 MG (80 MG, 1 IN 1 D), PER ORAL; 40 (40 MG, 1 IN 1 D), PER ORAL
     Route: 048
     Dates: start: 20100720
  4. METHYLDOPA [Concomitant]
  5. NIMESULIDE [Concomitant]
  6. OMEPRAZOLE [Concomitant]
  7. SPIRONOLACTONE [Concomitant]
  8. ASPIRIN [Concomitant]
  9. CLONIDINE [Concomitant]
  10. LEVOTHYROXINE SODIUM [Concomitant]

REACTIONS (6)
  - COUGH [None]
  - DRUG INEFFECTIVE [None]
  - DYSPNOEA [None]
  - INFARCTION [None]
  - OVERDOSE [None]
  - THYROID NEOPLASM [None]
